FAERS Safety Report 8777600 (Version 5)
Quarter: 2013Q2

REPORT INFORMATION
  Report Type: Report from Study
  Country: US (occurrence: US)
  Receive Date: 20120911
  Receipt Date: 20130508
  Transmission Date: 20140414
  Serious: Yes (Other)
  Sender: FDA-Public Use
  Company Number: PHEH2012US017503

PATIENT
  Sex: Female

DRUGS (1)
  1. TOBI [Suspect]
     Dosage: UNK UKN, UNK
     Dates: start: 1997

REACTIONS (7)
  - Diabetes mellitus [Unknown]
  - Arthritis [Unknown]
  - Cystic fibrosis [Unknown]
  - Pulmonary function test decreased [Unknown]
  - Disease progression [Unknown]
  - Osteopenia [Not Recovered/Not Resolved]
  - Nephrolithiasis [Recovered/Resolved]
